FAERS Safety Report 25486651 (Version 1)
Quarter: 2025Q2

REPORT INFORMATION
  Report Type: Spontaneous
  Country: BR (occurrence: BR)
  Receive Date: 20250627
  Receipt Date: 20250627
  Transmission Date: 20250716
  Serious: Yes (Other)
  Sender: ASTELLAS
  Company Number: BR-ASTELLAS-2022US035898

PATIENT
  Sex: Female

DRUGS (8)
  1. MICAFUNGIN [Suspect]
     Active Substance: MICAFUNGIN SODIUM
     Indication: Rash
     Dosage: 100 MG, ONCE DAILY (F/A 50 MG 2 VIALS, IV; 1X A DAY, DILUTED IN 50 ML OF 0.9% SALINE SOLUTION)
     Route: 042
     Dates: start: 20220811, end: 20220815
  2. VANCOMYCIN [Suspect]
     Active Substance: VANCOMYCIN
     Indication: Product used for unknown indication
     Route: 042
     Dates: start: 20220718, end: 20220728
  3. VANCOMYCIN [Suspect]
     Active Substance: VANCOMYCIN
     Dosage: 1000 MG, EVERY 12 HOURS
     Route: 042
     Dates: start: 20220804, end: 20220815
  4. MEROPENEM [Suspect]
     Active Substance: MEROPENEM
     Indication: Product used for unknown indication
     Dosage: 500 MG, ONCE DAILY
     Route: 042
     Dates: start: 20220718, end: 20220728
  5. MEROPENEM [Suspect]
     Active Substance: MEROPENEM
     Dosage: 1000 MG, ONCE DAILY
     Route: 042
     Dates: start: 20220803, end: 20220815
  6. POLYMYXIN B [Suspect]
     Active Substance: POLYMYXIN B
     Indication: Product used for unknown indication
     Dosage: 1000000 IU, EVERY 12 HOURS
     Route: 042
     Dates: start: 20220718, end: 20220728
  7. POLYMYXIN B [Suspect]
     Active Substance: POLYMYXIN B
     Dosage: 1000000 IU, ONCE DAILY
     Route: 042
     Dates: start: 20220803, end: 20220815
  8. DIPYRONE [Suspect]
     Active Substance: DIPYRONE
     Indication: Product used for unknown indication
     Route: 065

REACTIONS (1)
  - Drug reaction with eosinophilia and systemic symptoms [Recovering/Resolving]
